FAERS Safety Report 17842248 (Version 2)
Quarter: 2020Q2

REPORT INFORMATION
  Report Type: Report from Study
  Country: CO (occurrence: CO)
  Receive Date: 20200529
  Receipt Date: 20200602
  Transmission Date: 20200714
  Serious: Yes (Hospitalization)
  Sender: FDA-Public Use
  Company Number: CO-INCYTE CORPORATION-2019IN007580

PATIENT

DRUGS (3)
  1. OXYGEN. [Concomitant]
     Active Substance: OXYGEN
     Indication: PRODUCT USED FOR UNKNOWN INDICATION
     Dosage: UNK
     Route: 065
  2. JAKAVI [Suspect]
     Active Substance: RUXOLITINIB
     Dosage: 20 MG, Q12H
     Route: 048
  3. JAKAVI [Suspect]
     Active Substance: RUXOLITINIB
     Indication: MYELOFIBROSIS
     Dosage: 40 MG, QD
     Route: 048

REACTIONS (11)
  - Nausea [Unknown]
  - Pruritus [Unknown]
  - Spleen disorder [Unknown]
  - Urinary tract infection [Unknown]
  - Abdominal distension [Unknown]
  - Nasopharyngitis [Unknown]
  - Weight decreased [Unknown]
  - Kidney infection [Unknown]
  - Choking [Unknown]
  - Renal colic [Unknown]
  - Inappropriate schedule of product administration [Unknown]

NARRATIVE: CASE EVENT DATE: 20190724
